FAERS Safety Report 23075202 (Version 2)
Quarter: 2023Q4

REPORT INFORMATION
  Report Type: Report from Study
  Country: US (occurrence: US)
  Receive Date: 20231017
  Receipt Date: 20231122
  Transmission Date: 20240110
  Serious: Yes (Other)
  Sender: FDA-Public Use
  Company Number: US-BAYER-2023A148078

PATIENT
  Age: 74 Year
  Sex: Male
  Weight: 129.25 kg

DRUGS (19)
  1. ADEMPAS [Suspect]
     Active Substance: RIOCIGUAT
     Indication: Pulmonary arterial hypertension
     Dosage: UNK
     Dates: start: 20230626
  2. ADEMPAS [Suspect]
     Active Substance: RIOCIGUAT
     Indication: Pulmonary arterial hypertension
     Dosage: 2 MG, TID
     Route: 048
  3. ADEMPAS [Suspect]
     Active Substance: RIOCIGUAT
     Indication: Pulmonary arterial hypertension
     Dosage: 2.5 MG, TID
     Route: 048
  4. ELIQUIS [Concomitant]
     Active Substance: APIXABAN
  5. AMLODIPINE [Concomitant]
     Active Substance: AMLODIPINE BESYLATE
  6. ATORVASTATIN CALCIUM [Concomitant]
     Active Substance: ATORVASTATIN CALCIUM
  7. FUROSEMIDE [Concomitant]
     Active Substance: FUROSEMIDE
  8. METFORMIN HYDROCHLORIDE [Concomitant]
     Active Substance: METFORMIN HYDROCHLORIDE
  9. HYDROCHLOROTHIAZIDE [Concomitant]
     Active Substance: HYDROCHLOROTHIAZIDE
  10. TAMSULOSIN HYDROCHLORIDE [Concomitant]
     Active Substance: TAMSULOSIN HYDROCHLORIDE
  11. BREZTRI [Concomitant]
     Active Substance: BUDESONIDE\FORMOTEROL\GLYCOPYRROLATE
  12. BUMETANIDE [Concomitant]
     Active Substance: BUMETANIDE
  13. BENAZEPRIL HYDROCHLORIDE [Concomitant]
     Active Substance: BENAZEPRIL HYDROCHLORIDE
  14. ALLOPURINOL [Concomitant]
     Active Substance: ALLOPURINOL
  15. CALCITRIOL [Concomitant]
     Active Substance: CALCITRIOL
  16. DOXYCYCLINE [Concomitant]
     Active Substance: DOXYCYCLINE
  17. INDOMETHACIN [Concomitant]
     Active Substance: INDOMETHACIN
  18. OXYGEN [Concomitant]
     Active Substance: OXYGEN
  19. TORSEMIDE [Concomitant]
     Active Substance: TORSEMIDE

REACTIONS (5)
  - Renal impairment [None]
  - Nausea [None]
  - Headache [None]
  - Oedema peripheral [Not Recovered/Not Resolved]
  - Peripheral swelling [None]
